FAERS Safety Report 21062589 (Version 2)
Quarter: 2023Q1

REPORT INFORMATION
  Report Type: Spontaneous
  Country: AU (occurrence: AU)
  Receive Date: 20220711
  Receipt Date: 20230124
  Transmission Date: 20230417
  Serious: Yes (Other)
  Sender: FDA-Public Use
  Company Number: AU-SANOFI-01177118

PATIENT
  Sex: Female

DRUGS (1)
  1. RIFADIN [Suspect]
     Active Substance: RIFAMPIN
     Indication: Skin ulcer
     Dosage: 600 MG, QD
     Route: 048

REACTIONS (2)
  - Mycobacterium ulcerans infection [Recovering/Resolving]
  - Product use in unapproved indication [Unknown]
